FAERS Safety Report 6998249-7 (Version None)
Quarter: 2010Q3

REPORT INFORMATION
  Report Type: 
  Country: None (occurrence: None)
  Receive Date: 20100920
  Receipt Date: 20091222
  Transmission Date: 20110219
  Serious: No
  Sender: FDA-Public Use
  Company Number: US-ASTRAZENECA-2009SE33158

PATIENT
  Sex: Female
  Weight: 63.5 kg

DRUGS (4)
  1. SEROQUEL [Suspect]
     Route: 048
  2. BP MEDICATION [Concomitant]
  3. VALIUM [Concomitant]
  4. COSOPT [Concomitant]

REACTIONS (3)
  - ALOPECIA [None]
  - GLAUCOMA [None]
  - HYPOTHYROIDISM [None]
